FAERS Safety Report 10338093 (Version 3)
Quarter: 2014Q3

REPORT INFORMATION
  Report Type: Spontaneous
  Country: US (occurrence: US)
  Receive Date: 20140724
  Receipt Date: 20140806
  Transmission Date: 20150326
  Serious: Yes (Other)
  Sender: FDA-Public Use
  Company Number: US-JNJFOC-20140515319

PATIENT
  Sex: Male
  Weight: 58.97 kg

DRUGS (3)
  1. LEVAQUIN [Suspect]
     Active Substance: LEVOFLOXACIN
     Indication: SINUSITIS
     Dosage: 3 WEEKS
     Route: 048
     Dates: start: 201308, end: 201309
  2. LEVOFLOXACIN [Suspect]
     Active Substance: LEVOFLOXACIN
     Indication: SINUSITIS
     Dosage: 3 WEEKS
     Route: 048
     Dates: start: 201308, end: 201309
  3. PREDNISONE. [Concomitant]
     Active Substance: PREDNISONE
     Indication: SINUSITIS
     Dosage: 6-10 DAYS
     Route: 048
     Dates: start: 201308, end: 201308

REACTIONS (8)
  - Intervertebral disc protrusion [Unknown]
  - Dizziness [Recovered/Resolved]
  - Feeling abnormal [Unknown]
  - Confusional state [Recovered/Resolved]
  - Scar [Unknown]
  - Heart rate increased [Recovered/Resolved]
  - Muscle injury [Not Recovered/Not Resolved]
  - Joint injury [Not Recovered/Not Resolved]

NARRATIVE: CASE EVENT DATE: 2013
